FAERS Safety Report 20966225 (Version 1)
Quarter: 2022Q2

REPORT INFORMATION
  Report Type: Spontaneous
  Country: SA (occurrence: SA)
  Receive Date: 20220616
  Receipt Date: 20220616
  Transmission Date: 20220721
  Serious: Yes (Hospitalization, Other)
  Sender: FDA-Public Use
  Company Number: SA-MSNLABS-2022MSNLIT00668

PATIENT

DRUGS (3)
  1. CLOBAZAM [Suspect]
     Active Substance: CLOBAZAM
     Indication: Seizure
     Route: 065
  2. VALPROATE [Concomitant]
     Active Substance: VALPROIC ACID
     Indication: Seizure
     Route: 065
  3. HUMAN IMMUNOGLOBULIN G [Concomitant]
     Active Substance: HUMAN IMMUNOGLOBULIN G
     Indication: Seizure
     Route: 042

REACTIONS (1)
  - Drug ineffective [Unknown]
